FAERS Safety Report 8030164-2 (Version None)
Quarter: 2012Q1

REPORT INFORMATION
  Report Type: 
  Country: None (occurrence: None)
  Receive Date: 20120106
  Receipt Date: 20120106
  Transmission Date: 20120608
  Serious: Yes (Other)
  Sender: FDA-Public Use
  Company Number: None

PATIENT
  Sex: Female

DRUGS (2)
  1. UNSPECIFIED ORAL CARE PRODUCT (STOMATOLOGICAL PREPARATION) UNSPECIFIED [Suspect]
     Indication: DENTAL DISORDER PROPHYLAXIS
     Dosage: ORAL
  2. LISTERINE TOTAL CARE SENSITIVE (ORAL CARE PRODUCTS) LIQUID [Suspect]
     Indication: PRODUCT USED FOR UNKNOWN INDICATION
     Dosage: ORAL
     Route: 048

REACTIONS (4)
  - ORAL DISCOMFORT [None]
  - MOUTH ULCERATION [None]
  - APPLICATION SITE PAIN [None]
  - FEAR [None]
